FAERS Safety Report 19177297 (Version 2)
Quarter: 2021Q2

REPORT INFORMATION
  Report Type: Spontaneous
  Country: US (occurrence: US)
  Receive Date: 20210425
  Receipt Date: 20210509
  Transmission Date: 20210717
  Serious: No
  Sender: FDA-Public Use
  Company Number: US-ORGANON-O2104USA000991

PATIENT
  Age: 17 Year

DRUGS (2)
  1. NEXPLANON [Suspect]
     Active Substance: ETONOGESTREL
     Dosage: 1 DOSAGE FORM
     Route: 059
     Dates: start: 20210409, end: 20210409
  2. NEXPLANON [Suspect]
     Active Substance: ETONOGESTREL
     Dosage: 1 DOSAGE FORM; LEFT UPPER ARM
     Route: 059

REACTIONS (5)
  - Product quality issue [Unknown]
  - Complication associated with device [Recovered/Resolved]
  - Overdose [Unknown]
  - No adverse event [Unknown]
  - Device use issue [Unknown]

NARRATIVE: CASE EVENT DATE: 20210409
